FAERS Safety Report 10619486 (Version 3)
Quarter: 2015Q1

REPORT INFORMATION
  Report Type: Spontaneous
  Country: FR (occurrence: FR)
  Receive Date: 20141202
  Receipt Date: 20150219
  Transmission Date: 20150720
  Serious: Yes (Life-Threatening, Hospitalization, Other)
  Sender: FDA-Public Use
  Company Number: FR-TEVA-524537ISR

PATIENT
  Age: 36 Year
  Sex: Male

DRUGS (10)
  1. PIPERACILLINE TAZOBACTAM MYLAN 4G/ 500 MG [Suspect]
     Active Substance: PIPERACILLIN SODIUM\TAZOBACTAM SODIUM
     Route: 042
     Dates: start: 20140804, end: 20140819
  2. HYDROCORTISONE. [Suspect]
     Active Substance: HYDROCORTISONE
     Route: 042
     Dates: start: 20140804, end: 20140812
  3. PARACETAMOL [Concomitant]
     Active Substance: ACETAMINOPHEN
     Indication: FACIAL NEURALGIA
     Dosage: USUAL TREATMENT
  4. AMIKACIN MYLAN [Suspect]
     Active Substance: AMIKACIN
     Dates: start: 20140812
  5. PIPERACILLINE TAZOBACTAM MYLAN 4G/ 500 MG [Suspect]
     Active Substance: PIPERACILLIN SODIUM\TAZOBACTAM SODIUM
     Dates: start: 201407
  6. CISPLATINE TEVA 1 MG/1 ML [Suspect]
     Active Substance: CISPLATIN
     Indication: UNDIFFERENTIATED NASOPHARYNGEAL CARCINOMA
     Route: 042
     Dates: start: 20140606, end: 20140725
  7. AMIKACIN MYLAN [Suspect]
     Active Substance: AMIKACIN
     Indication: UNDIFFERENTIATED NASOPHARYNGEAL CARCINOMA
     Route: 042
     Dates: start: 20140804, end: 20140809
  8. MORPHINICS [Concomitant]
     Dosage: USUAL TREATMENT
  9. SOLUPRED [Concomitant]
     Active Substance: PREDNISOLONE
     Dosage: 40 MILLIGRAM DAILY;
  10. INSULINE [Suspect]
     Active Substance: INSULIN NOS

REACTIONS (28)
  - Device related infection [Unknown]
  - Fanconi syndrome acquired [Recovered/Resolved]
  - Renal tubular disorder [Recovered/Resolved]
  - Acquired aminoaciduria [Unknown]
  - Oxygen saturation decreased [Unknown]
  - Hypophosphataemia [Recovered/Resolved]
  - Staphylococcal sepsis [Unknown]
  - Pyrexia [Unknown]
  - Tachypnoea [Unknown]
  - Hypoxia [Unknown]
  - Nausea [Unknown]
  - Rales [Unknown]
  - Polyuria [Recovered/Resolved]
  - Hypomagnesaemia [Recovered/Resolved]
  - Pulmonary embolism [Unknown]
  - Septic shock [Unknown]
  - Pseudomonas test positive [Unknown]
  - Hypokalaemia [Recovered/Resolved]
  - Hypoalbuminaemia [Unknown]
  - Hypouricaemia [Unknown]
  - Proteinuria [Unknown]
  - Fanconi syndrome [None]
  - Bone marrow failure [Unknown]
  - Dyspepsia [Unknown]
  - Vomiting [Unknown]
  - Acute respiratory distress syndrome [Unknown]
  - Mucosal inflammation [Unknown]
  - Weight decreased [Unknown]

NARRATIVE: CASE EVENT DATE: 2014
